FAERS Safety Report 6973987-0 (Version None)
Quarter: 2010Q3

REPORT INFORMATION
  Report Type: 
  Country: None (occurrence: None)
  Receive Date: 20100909
  Receipt Date: 20100902
  Transmission Date: 20110219
  Serious: Yes (Hospitalization)
  Sender: FDA-Public Use
  Company Number: US-GILEAD-2010-0031645

PATIENT
  Age: 57 Year
  Sex: Female
  Weight: 78.996 kg

DRUGS (10)
  1. LETAIRIS [Suspect]
     Indication: PULMONARY ARTERIAL HYPERTENSION
     Route: 048
     Dates: start: 20100716
  2. PREDNISONE [Concomitant]
  3. ALBUTEROL [Concomitant]
     Route: 055
  4. CLONIDINE [Concomitant]
  5. TRETINOIN [Concomitant]
  6. FOSAMAX [Concomitant]
  7. CALCITRIOL [Concomitant]
  8. OXYCODONE HCL [Concomitant]
  9. POTASSIUM CHLORIDE [Concomitant]
  10. OMEPRAZOLE [Concomitant]

REACTIONS (2)
  - CEREBROVASCULAR ACCIDENT [None]
  - HYPOTENSION [None]
